FAERS Safety Report 9632518 (Version 2)
Quarter: 2013Q4

REPORT INFORMATION
  Report Type: Report from Study
  Country: US (occurrence: US)
  Receive Date: 20131018
  Receipt Date: 20131129
  Transmission Date: 20140711
  Serious: Yes (Hospitalization, Other)
  Sender: FDA-Public Use
  Company Number: US-BRISTOL-MYERS SQUIBB COMPANY-19530021

PATIENT
  Age: 63 Year
  Sex: Male
  Weight: 112.5 kg

DRUGS (2)
  1. IPILIMUMAB [Suspect]
     Indication: MALIGNANT MELANOMA
     Route: 042
     Dates: start: 20130905
  2. ZETIA [Suspect]

REACTIONS (5)
  - Diarrhoea [Recovering/Resolving]
  - Fatigue [Recovering/Resolving]
  - Lipase increased [Recovering/Resolving]
  - Clostridium test positive [Recovering/Resolving]
  - Amylase increased [Recovering/Resolving]
